FAERS Safety Report 9410953 (Version 1)
Quarter: 2013Q3

REPORT INFORMATION
  Report Type: Report from Study
  Country: FR (occurrence: FR)
  Receive Date: 20130719
  Receipt Date: 20130719
  Transmission Date: 20140515
  Serious: Yes (Other)
  Sender: FDA-Public Use
  Company Number: FR-ASTRAZENECA-2013SE51833

PATIENT
  Age: 18460 Day
  Sex: Male

DRUGS (6)
  1. AZD6140 [Suspect]
     Indication: ACUTE MYOCARDIAL INFARCTION
     Dosage: IN-HOSPITAL TICAGRELOR
     Route: 048
     Dates: start: 20130628, end: 20130628
  2. ISOPTINE [Concomitant]
     Route: 042
     Dates: start: 20130628, end: 20130628
  3. ISOPTINE [Concomitant]
     Route: 042
     Dates: start: 20130701, end: 20130701
  4. RISORDAN [Concomitant]
     Route: 042
     Dates: start: 20130628, end: 20130628
  5. MORPHINE [Concomitant]
     Route: 042
     Dates: start: 20130628, end: 20130628
  6. TAHOR [Concomitant]
     Route: 048
     Dates: start: 20130628

REACTIONS (1)
  - Ventricular tachycardia [Recovered/Resolved]
